FAERS Safety Report 16002471 (Version 1)
Quarter: 2019Q1

REPORT INFORMATION
  Report Type: Report from Study
  Country: None (occurrence: CA)
  Receive Date: 20190225
  Receipt Date: 20190225
  Transmission Date: 20190418
  Serious: Yes (Other)
  Sender: FDA-Public Use
  Company Number: CA-ABBVIE-19K-028-2679383-00

PATIENT
  Sex: Male

DRUGS (2)
  1. HUMIRA [Suspect]
     Active Substance: ADALIMUMAB
     Route: 058
     Dates: start: 20190211
  2. HUMIRA [Suspect]
     Active Substance: ADALIMUMAB
     Indication: CROHN^S DISEASE
     Route: 058
     Dates: start: 20120829, end: 20190201

REACTIONS (8)
  - Gastroenteritis viral [Unknown]
  - Intestinal obstruction [Recovered/Resolved]
  - Weight decreased [Unknown]
  - Crohn^s disease [Unknown]
  - Defaecation urgency [Not Recovered/Not Resolved]
  - Hernia [Unknown]
  - Nasopharyngitis [Recovering/Resolving]
  - Glucose tolerance impaired [Not Recovered/Not Resolved]

NARRATIVE: CASE EVENT DATE: 2018
